FAERS Safety Report 9054257 (Version 9)
Quarter: 2014Q3

REPORT INFORMATION
  Report Type: Spontaneous
  Country: US (occurrence: US)
  Receive Date: 20130208
  Receipt Date: 20140905
  Transmission Date: 20150326
  Serious: Yes (Hospitalization, Other)
  Sender: FDA-Public Use
  Company Number: US-GLAXOSMITHKLINE-A1011335A

PATIENT
  Age: 62 Year
  Sex: Female
  Weight: 70 kg

DRUGS (5)
  1. FLOLAN [Suspect]
     Active Substance: EPOPROSTENOL SODIUM
     Indication: PULMONARY ARTERIAL HYPERTENSION
     Dosage: 22.6NGKM CONTINUOUS
     Route: 042
     Dates: start: 20061005
  2. DRESSING [Suspect]
     Active Substance: UNSPECIFIED INGREDIENT
     Indication: PRODUCT USED FOR UNKNOWN INDICATION
  3. REVATIO [Concomitant]
     Active Substance: SILDENAFIL CITRATE
  4. DRESSING [Suspect]
     Active Substance: UNSPECIFIED INGREDIENT
  5. WARFARIN [Concomitant]
     Active Substance: WARFARIN

REACTIONS (10)
  - Sinusitis [Unknown]
  - Upper limb fracture [Unknown]
  - Application site pruritus [Unknown]
  - Application site erythema [Unknown]
  - Tooth extraction [Unknown]
  - Dyspnoea [Unknown]
  - Pruritus [Unknown]
  - Device related infection [Unknown]
  - Gastrointestinal infection [Unknown]
  - Cardiac output increased [Unknown]

NARRATIVE: CASE EVENT DATE: 20130126
